FAERS Safety Report 12915000 (Version 1)
Quarter: 2016Q4

REPORT INFORMATION
  Report Type: Spontaneous
  Country: US (occurrence: US)
  Receive Date: 20161106
  Receipt Date: 20161106
  Transmission Date: 20170207
  Serious: No
  Sender: FDA-Public Use
  Company Number: US-RELYPSA-RLY2016002118

PATIENT
  Sex: Female

DRUGS (22)
  1. CALCIUM ACETATE. [Concomitant]
     Active Substance: CALCIUM ACETATE
  2. VELTASSA [Suspect]
     Active Substance: PATIROMER
     Indication: HYPERKALAEMIA
     Dosage: 8.4 G, QD
     Route: 048
     Dates: start: 201608, end: 2016
  3. NIFEDIPINE. [Concomitant]
     Active Substance: NIFEDIPINE
  4. TEMAZEPAM. [Concomitant]
     Active Substance: TEMAZEPAM
  5. SENSIPAR [Concomitant]
     Active Substance: CINACALCET HYDROCHLORIDE
  6. LEVOTHYROXINE SODIUM. [Concomitant]
     Active Substance: LEVOTHYROXINE SODIUM
  7. HYDRALAZINE HCL [Concomitant]
     Active Substance: HYDRALAZINE HYDROCHLORIDE
  8. CARVEDILOL. [Concomitant]
     Active Substance: CARVEDILOL
  9. AMITRIPTYLINE HCL [Concomitant]
     Active Substance: AMITRIPTYLINE
  10. TOPIRAMATE. [Concomitant]
     Active Substance: TOPIRAMATE
  11. ONDANSETRON [Concomitant]
     Active Substance: ONDANSETRON
  12. DOXAZOSIN MESYLATE. [Concomitant]
     Active Substance: DOXAZOSIN MESYLATE
  13. VITAMIN D [Concomitant]
     Active Substance: CHOLECALCIFEROL
  14. SPS [Concomitant]
     Active Substance: SODIUM POLYSTYRENE SULFONATE
  15. SERTRALINE HCL [Concomitant]
     Active Substance: SERTRALINE HYDROCHLORIDE
  16. OMEPRAZOLE. [Concomitant]
     Active Substance: OMEPRAZOLE
  17. NEXIUM [Concomitant]
     Active Substance: ESOMEPRAZOLE MAGNESIUM
  18. LOSARTAN POTASSIUM. [Concomitant]
     Active Substance: LOSARTAN POTASSIUM
  19. ASPIRIN 81 [Concomitant]
     Active Substance: ASPIRIN
  20. ALPRAZOLAM. [Concomitant]
     Active Substance: ALPRAZOLAM
  21. VELTASSA [Suspect]
     Active Substance: PATIROMER
     Dosage: 8.4 G, ON SATURDAY, TUESDAY AND THURSDAY
     Route: 048
     Dates: start: 2016
  22. METOCLOPRAMIDE HCL [Concomitant]
     Active Substance: METOCLOPRAMIDE HYDROCHLORIDE

REACTIONS (1)
  - Off label use [Not Recovered/Not Resolved]
